FAERS Safety Report 4346016-5 (Version None)
Quarter: 2004Q2

REPORT INFORMATION
  Report Type: 
  Country: None (occurrence: None)
  Receive Date: 20040423
  Receipt Date: 20040414
  Transmission Date: 20050107
  Serious: Yes (Life-Threatening)
  Sender: FDA-Public Use
  Company Number: 000#8#2004-00177

PATIENT
  Age: 57 Year
  Sex: Female

DRUGS (3)
  1. NITROGLYCERIN [Suspect]
     Indication: HYPERTENSION
     Dosage: 0.25 MICROGRAM/KG PER MIN  , INTRAVENOUS DRIP
     Route: 041
  2. BENZOCAINE (BENZOCAINE) [Suspect]
     Indication: INTUBATION
     Dosage: OROPHARINGEAL
     Route: 049
  3. FENOLDOPAM [Concomitant]

REACTIONS (6)
  - ACQUIRED METHAEMOGLOBINAEMIA [None]
  - ACUTE RESPIRATORY DISTRESS SYNDROME [None]
  - CYANOSIS [None]
  - INFUSION RELATED REACTION [None]
  - POST PROCEDURAL COMPLICATION [None]
  - SPEECH DISORDER [None]
